FAERS Safety Report 5126466-X (Version None)
Quarter: 2006Q4

REPORT INFORMATION
  Report Type: 
  Country: None (occurrence: None)
  Receive Date: 20061010
  Receipt Date: 20060928
  Transmission Date: 20070319
  Serious: Yes (Hospitalization, Other)
  Sender: FDA-Public Use
  Company Number: 2006118763

PATIENT
  Age: 75 Year
  Sex: Female
  Weight: 74.3899 kg

DRUGS (6)
  1. LIPITOR [Suspect]
     Indication: BLOOD TRIGLYCERIDES INCREASED
     Dosage: 20 MG 20 MG, 1 IN 1 D)/4 YEARS AGO
  2. LISINOPRIL [Concomitant]
  3. ASPIRIN [Concomitant]
  4. CALCIUM (CALCIUM) [Concomitant]
  5. ATENOLOL [Concomitant]
  6. METFORMIN HCL [Concomitant]

REACTIONS (6)
  - DIABETES MELLITUS [None]
  - MUSCLE FATIGUE [None]
  - MUSCULAR WEAKNESS [None]
  - PULMONARY EMBOLISM [None]
  - THROMBOSIS [None]
  - VERTIGO [None]
